FAERS Safety Report 7987106-5 (Version None)
Quarter: 2011Q4

REPORT INFORMATION
  Report Type: 
  Country: None (occurrence: None)
  Receive Date: 20111216
  Receipt Date: 20110603
  Transmission Date: 20120403
  Serious: No
  Sender: FDA-Public Use
  Company Number: US-BRISTOL-MYERS SQUIBB COMPANY-15614290

PATIENT
  Age: 6 Year
  Sex: Male

DRUGS (2)
  1. ABILIFY [Suspect]
     Indication: AFFECTIVE DISORDER
     Dosage: 2.5MG TWICE DAILY DOSE INCREASED TO 5MG
     Dates: start: 20101001
  2. ABILIFY [Suspect]
     Indication: ATTENTION DEFICIT/HYPERACTIVITY DISORDER
     Dosage: 2.5MG TWICE DAILY DOSE INCREASED TO 5MG
     Dates: start: 20101001

REACTIONS (10)
  - FLUSHING [None]
  - AGGRESSION [None]
  - IRRITABILITY [None]
  - DRUG DOSE OMISSION [None]
  - POOR QUALITY SLEEP [None]
  - NIGHT SWEATS [None]
  - BITE [None]
  - FALL [None]
  - CRYING [None]
  - CONTUSION [None]
